FAERS Safety Report 16042999 (Version 1)
Quarter: 2019Q1

REPORT INFORMATION
  Report Type: Spontaneous
  Country: GR (occurrence: GR)
  Receive Date: 20190306
  Receipt Date: 20190306
  Transmission Date: 20190418
  Serious: Yes (Hospitalization)
  Sender: FDA-Public Use
  Company Number: GR-MYLANLABS-2019M1020580

PATIENT
  Age: 29 Year
  Sex: Male

DRUGS (3)
  1. ETHAMBUTOL [Suspect]
     Active Substance: ETHAMBUTOL HYDROCHLORIDE
     Indication: LYMPHADENITIS
     Dosage: UNK
  2. KLARICID [Suspect]
     Active Substance: CLARITHROMYCIN
     Indication: LYMPHADENITIS
  3. RIFAMPICIN [Concomitant]
     Active Substance: RIFAMPIN
     Indication: LYMPHADENITIS
     Dosage: UNK

REACTIONS (1)
  - Drug ineffective [Unknown]
